APPROVED DRUG PRODUCT: RAZADYNE ER
Active Ingredient: GALANTAMINE HYDROBROMIDE
Strength: EQ 8MG BASE **Federal Register determination that product was not discontinued or withdrawn for safety or effectiveness reasons**
Dosage Form/Route: CAPSULE, EXTENDED RELEASE;ORAL
Application: N021615 | Product #001
Applicant: JANSSEN PHARMACEUTICALS INC
Approved: Apr 1, 2005 | RLD: Yes | RS: No | Type: DISCN